FAERS Safety Report 10253409 (Version 2)
Quarter: 2014Q2

REPORT INFORMATION
  Report Type: Spontaneous
  Country: JP (occurrence: JP)
  Receive Date: 20140623
  Receipt Date: 20140623
  Transmission Date: 20141212
  Serious: Yes (Hospitalization, Other)
  Sender: FDA-Public Use
  Company Number: PHHY2014JP069893

PATIENT
  Age: 84 Year
  Sex: Female
  Weight: 37 kg

DRUGS (5)
  1. EXELON PATCH [Suspect]
     Indication: DEMENTIA ALZHEIMER^S TYPE
     Dosage: 9 MG DAILY (DAILY DOSE: 4.6 MG/24 HOURS)
     Route: 062
     Dates: start: 20131004
  2. EXELON PATCH [Suspect]
     Dosage: 13.5 MG DAILY (DAILY DOSE: 6.9 MG/24 HOURS)
     Route: 062
     Dates: start: 20131101, end: 20140224
  3. BAYASPIRIN [Suspect]
     Indication: PROPHYLAXIS
     Dosage: 100 MG, ONCE DAILY
     Route: 048
     Dates: start: 20130705, end: 20140224
  4. OLMETEC [Concomitant]
     Indication: HYPERTENSION
     Dosage: 20 MG, UNK
     Route: 048
  5. BONALON [Concomitant]
     Dosage: UNK UKN, UNK

REACTIONS (9)
  - Gastric ulcer [Recovered/Resolved]
  - Vomiting [Unknown]
  - Melaena [Unknown]
  - Haematemesis [Recovered/Resolved]
  - Dementia [Unknown]
  - Psychiatric symptom [Unknown]
  - Abnormal behaviour [Unknown]
  - Drug level increased [Recovered/Resolved]
  - Anaemia [Unknown]
